FAERS Safety Report 6430495-3 (Version None)
Quarter: 2009Q4

REPORT INFORMATION
  Report Type: 
  Country: None (occurrence: None)
  Receive Date: 20091106
  Receipt Date: 20091102
  Transmission Date: 20100525
  Serious: Yes (Hospitalization, Congenital Anomaly)
  Sender: FDA-Public Use
  Company Number: A0772366A

PATIENT
  Sex: Male

DRUGS (6)
  1. PAXIL [Suspect]
     Indication: DEPRESSION
     Dates: start: 19980101, end: 20040610
  2. PAXIL CR [Suspect]
     Indication: ANXIETY
     Dosage: 25MG PER DAY
     Dates: start: 20031001, end: 20040610
  3. VITAMIN TAB [Concomitant]
  4. ANTIBIOTICS [Concomitant]
  5. FOLIC ACID [Concomitant]
  6. TYLENOL [Concomitant]

REACTIONS (23)
  - ANAEMIA [None]
  - ARRHYTHMIA [None]
  - ATRIOVENTRICULAR BLOCK COMPLETE [None]
  - CARDIOMEGALY [None]
  - CONGENITAL INGUINAL HERNIA [None]
  - DEEP VEIN THROMBOSIS POSTOPERATIVE [None]
  - DRUG EXPOSURE DURING PREGNANCY [None]
  - FALLOT'S TETRALOGY [None]
  - GASTROOESOPHAGEAL REFLUX DISEASE [None]
  - HYDROCELE [None]
  - HYPOCALCAEMIA [None]
  - INFUSION SITE THROMBOSIS [None]
  - KLEBSIELLA INFECTION [None]
  - MATERNAL DRUGS AFFECTING FOETUS [None]
  - MULTIPLE CONGENITAL ABNORMALITIES [None]
  - PATENT DUCTUS ARTERIOSUS [None]
  - POST PROCEDURAL COMPLICATION [None]
  - POSTOPERATIVE THROMBOSIS [None]
  - PULMONARY ARTERY STENOSIS CONGENITAL [None]
  - PULMONARY VALVE INCOMPETENCE [None]
  - PULMONARY VALVE STENOSIS CONGENITAL [None]
  - TACHYCARDIA [None]
  - TRICUSPID VALVE INCOMPETENCE [None]
